FAERS Safety Report 14701280 (Version 1)
Quarter: 2018Q1

REPORT INFORMATION
  Report Type: Report from Study
  Country: None (occurrence: IE)
  Receive Date: 20180330
  Receipt Date: 20180330
  Transmission Date: 20180509
  Serious: Yes (Death, Hospitalization, Other)
  Sender: FDA-Public Use
  Company Number: IE-BAUSCH-BL-2018-008404

PATIENT
  Age: 49 Year
  Sex: Female

DRUGS (8)
  1. TRAMETINIB [Suspect]
     Active Substance: TRAMETINIB
     Indication: MALIGNANT MELANOMA
     Route: 065
     Dates: start: 201612, end: 201705
  2. DABRAFENIB [Suspect]
     Active Substance: DABRAFENIB
     Indication: MALIGNANT MELANOMA
     Route: 065
     Dates: start: 201612
  3. DABRAFENIB [Suspect]
     Active Substance: DABRAFENIB
     Route: 065
     Dates: end: 201705
  4. DABRAFENIB [Suspect]
     Active Substance: DABRAFENIB
     Route: 065
  5. PREDNISOLONE. [Suspect]
     Active Substance: PREDNISOLONE
     Indication: PRODUCT USED FOR UNKNOWN INDICATION
     Route: 065
  6. TRAMETINIB [Suspect]
     Active Substance: TRAMETINIB
     Route: 065
  7. ZOMETA [Suspect]
     Active Substance: ZOLEDRONIC ACID
     Indication: MALIGNANT MELANOMA
     Route: 065
  8. DABRAFENIB [Suspect]
     Active Substance: DABRAFENIB
     Dosage: REDUCED TO 75 PERCENT
     Route: 065

REACTIONS (11)
  - Cerebral haemorrhage [Unknown]
  - Diarrhoea [Unknown]
  - Metastases to central nervous system [Unknown]
  - Pyrexia [Unknown]
  - Malignant melanoma [Unknown]
  - Death [Fatal]
  - Drug tolerance decreased [Unknown]
  - Nausea [Unknown]
  - Seizure [Unknown]
  - Vomiting [Unknown]
  - Chills [Unknown]

NARRATIVE: CASE EVENT DATE: 201611
